FAERS Safety Report 5416064-2 (Version None)
Quarter: 2007Q3

REPORT INFORMATION
  Report Type: 
  Country: None (occurrence: None)
  Receive Date: 20070815
  Receipt Date: 20070810
  Transmission Date: 20080115
  Serious: Yes (Life-Threatening, Hospitalization)
  Sender: FDA-Public Use
  Company Number: JP-MERCK-0706USA03768

PATIENT
  Age: 74 Year
  Sex: Male
  Weight: 72 kg

DRUGS (14)
  1. ZOCOR [Suspect]
     Indication: HYPERLIPIDAEMIA
     Route: 048
     Dates: start: 19930101, end: 20070611
  2. NORVASC [Suspect]
     Indication: HYPERTENSION
     Route: 048
     Dates: start: 19930101, end: 20070611
  3. NORVASC [Suspect]
     Route: 048
     Dates: start: 20070621
  4. WARFARIN POTASSIUM [Suspect]
     Indication: ATRIAL FIBRILLATION
     Route: 048
     Dates: start: 19930101, end: 20070611
  5. WARFARIN POTASSIUM [Suspect]
     Route: 048
     Dates: start: 20070621
  6. CERCINE [Concomitant]
     Route: 048
     Dates: end: 20070611
  7. FURSULTIAMINE [Concomitant]
     Route: 048
     Dates: end: 20070611
  8. LULU GOLD [Suspect]
     Indication: PYREXIA
     Route: 048
     Dates: start: 20070611, end: 20070611
  9. EPERISONE HYDROCHLORIDE [Concomitant]
     Route: 048
  10. CERNILTON [Concomitant]
     Route: 048
  11. [THERAPY UNSPECIFIED] [Concomitant]
     Route: 048
  12. SELBEX [Concomitant]
     Route: 048
  13. OMEPRAZOLE [Concomitant]
     Route: 048
  14. EVIPROSTAT [Concomitant]
     Route: 048

REACTIONS (4)
  - LIVER DISORDER [None]
  - PYREXIA [None]
  - RENAL FAILURE ACUTE [None]
  - RHABDOMYOLYSIS [None]
